FAERS Safety Report 9481032 (Version 1)
Quarter: 2013Q3

REPORT INFORMATION
  Report Type: Spontaneous
  Country: US (occurrence: US)
  Receive Date: 20130828
  Receipt Date: 20130828
  Transmission Date: 20140515
  Serious: Yes (Hospitalization)
  Sender: FDA-Public Use
  Company Number: US-AMGEN-KDL148335

PATIENT
  Age: 68 Year
  Sex: Female

DRUGS (4)
  1. ENBREL [Suspect]
     Indication: PSORIATIC ARTHROPATHY
     Dosage: 50 MG, 2 TIMES/WK
     Route: 058
     Dates: start: 20030801, end: 200508
  2. METFORMIN [Concomitant]
     Dosage: UNK UNK, UNK
  3. INSULIN [Concomitant]
     Dosage: UNK UNK, UNK
  4. LISINOPRIL [Concomitant]

REACTIONS (3)
  - Breast cancer [Recovering/Resolving]
  - Psoriatic arthropathy [Unknown]
  - Condition aggravated [Unknown]
